FAERS Safety Report 4821957-0 (Version None)
Quarter: 2005Q4

REPORT INFORMATION
  Report Type: 
  Country: None (occurrence: None)
  Receive Date: 20051103
  Receipt Date: 20051025
  Transmission Date: 20060501
  Serious: Yes (Disabling, Other)
  Sender: FDA-Public Use
  Company Number: 2004-11-0992

PATIENT
  Age: 39 Year
  Sex: Female
  Weight: 80 kg

DRUGS (15)
  1. BETAMETHASONE [Suspect]
     Indication: SINUS DISORDER
     Dosage: 6 MG QD
     Dates: start: 20031010, end: 20031014
  2. BETAMETHASONE SODIUM PHOSPHATE [Suspect]
     Indication: SINUS DISORDER
     Dosage: 4 MG BID INTRANASAL
     Route: 045
     Dates: start: 20031104, end: 20031112
  3. GENTAMICIN SULFATE [Concomitant]
  4. CEFUROXIME AXETIL TABLETS [Concomitant]
  5. PIVALONE [Concomitant]
  6. SOLU-MEDROL [Concomitant]
  7. PYOSTACINE [Concomitant]
  8. ORAL CONTRACEPTIVE (NOS) [Concomitant]
  9. DETURGYLONE [Concomitant]
  10. RHINUREFLEX (IBUPROFEN/ PSEUDOEPHEDRINE) [Concomitant]
  11. ACETYLCYSTEINE [Concomitant]
  12. DERINOX [Concomitant]
  13. ACETAMINOPHEN [Concomitant]
  14. TOPLEXIL [Concomitant]
  15. HELICIDINE (MUCGLYCOPROTEIN) [Concomitant]

REACTIONS (5)
  - ARTHRALGIA [None]
  - BONE INFARCTION [None]
  - INADEQUATE ANALGESIA [None]
  - OSTEONECROSIS [None]
  - PAIN [None]
